FAERS Safety Report 19968875 (Version 1)
Quarter: 2021Q4

REPORT INFORMATION
  Report Type: Spontaneous
  Country: US (occurrence: US)
  Receive Date: 20211019
  Receipt Date: 20211019
  Transmission Date: 20220303
  Serious: No
  Sender: FDA-Public Use
  Company Number: US-PFIZER INC-202100943811

PATIENT
  Age: 30 Year
  Sex: Female
  Weight: 54.42 kg

DRUGS (4)
  1. IBRANCE [Suspect]
     Active Substance: PALBOCICLIB
     Indication: Breast cancer female
     Dosage: 125 MG, DAILY (21 DAYS)
     Route: 048
  2. BUPRENORPHINE [Concomitant]
     Active Substance: BUPRENORPHINE
     Dosage: 5 UG
  3. TAMOXIFEN CITRATE [Concomitant]
     Active Substance: TAMOXIFEN CITRATE
     Dosage: 10 MG
  4. ALLERGY [CHLORPHENAMINE MALEATE] [Concomitant]

REACTIONS (2)
  - White blood cell count decreased [Unknown]
  - Platelet count decreased [Unknown]
